FAERS Safety Report 6310228-1 (Version None)
Quarter: 2009Q3

REPORT INFORMATION
  Report Type: 
  Country: None (occurrence: None)
  Receive Date: 20090814
  Receipt Date: 20090805
  Transmission Date: 20100115
  Serious: Yes (Death, Hospitalization)
  Sender: FDA-Public Use
  Company Number: TW-BAXTER-2009BH011723

PATIENT
  Sex: Female

DRUGS (2)
  1. DIANEAL [Suspect]
     Indication: PERITONEAL DIALYSIS
     Route: 033
     Dates: start: 20090601
  2. DIANEAL [Suspect]
     Route: 033
     Dates: start: 20090601

REACTIONS (3)
  - ASPHYXIA [None]
  - PNEUMONIA [None]
  - TRACHEAL OBSTRUCTION [None]
